FAERS Safety Report 4702725-7 (Version None)
Quarter: 2005Q2

REPORT INFORMATION
  Report Type: 
  Country: None (occurrence: None)
  Receive Date: 20050624
  Receipt Date: 20050425
  Transmission Date: 20051028
  Serious: No
  Sender: FDA-Public Use
  Company Number: 2005BI008721

PATIENT
  Sex: Female

DRUGS (2)
  1. NATALIZUMAB [Suspect]
     Indication: MULTIPLE SCLEROSIS
     Dosage: 300 MG;QM;IV
     Route: 042
     Dates: start: 20050208, end: 20050208
  2. AVONEX [Suspect]
     Indication: MULTIPLE SCLEROSIS
     Dosage: 30 UG;QW;IM
     Route: 030
     Dates: start: 20020823

REACTIONS (15)
  - ASTHENIA [None]
  - BODY TEMPERATURE DECREASED [None]
  - COGNITIVE DISORDER [None]
  - ENURESIS [None]
  - FEELING COLD [None]
  - INFECTION [None]
  - LACERATION [None]
  - MEMORY IMPAIRMENT [None]
  - MULTIPLE SCLEROSIS RELAPSE [None]
  - MUSCLE SPASMS [None]
  - NASOPHARYNGITIS [None]
  - NEURALGIA [None]
  - PAIN IN EXTREMITY [None]
  - SKIN DISORDER [None]
  - SPEECH DISORDER [None]
